FAERS Safety Report 24372843 (Version 1)
Quarter: 2024Q3

REPORT INFORMATION
  Report Type: Spontaneous
  Country: EU (occurrence: EU)
  Receive Date: 20240927
  Receipt Date: 20240927
  Transmission Date: 20241017
  Serious: Yes (Death)
  Sender: ETHYPHARM
  Company Number: None

PATIENT

DRUGS (6)
  1. BUPRENORPHINE HYDROCHLORIDE [Suspect]
     Active Substance: BUPRENORPHINE HYDROCHLORIDE
     Dosage: INCONNUE
     Dates: end: 202103
  2. MIANSERIN HYDROCHLORIDE [Suspect]
     Active Substance: MIANSERIN HYDROCHLORIDE
     Dosage: INCONNUE
     Dates: end: 202103
  3. OXAZEPAM [Suspect]
     Active Substance: OXAZEPAM
     Dosage: INCONNUE
     Dates: end: 202103
  4. METHADONE [Suspect]
     Active Substance: METHADONE HYDROCHLORIDE
     Dosage: INCONNUE
     Dates: end: 202103
  5. TRAMADOL [Suspect]
     Active Substance: TRAMADOL\TRAMADOL HYDROCHLORIDE
     Dosage: INCONNUE
     Dates: end: 202103
  6. CODEINE [Suspect]
     Active Substance: CODEINE
     Dosage: INCONNUE
     Dates: end: 202103

REACTIONS (2)
  - Drug abuse [Fatal]
  - Death [Fatal]
